FAERS Safety Report 15605514 (Version 1)
Quarter: 2018Q4

REPORT INFORMATION
  Report Type: Spontaneous
  Country: US (occurrence: US)
  Receive Date: 20181112
  Receipt Date: 20181112
  Transmission Date: 20190205
  Serious: No
  Sender: FDA-Public Use
  Company Number: US-AUROBINDO-AUR-APU-2018-046718

PATIENT
  Sex: Female

DRUGS (1)
  1. ESOMEPRAZOLE. [Suspect]
     Active Substance: ESOMEPRAZOLE MAGNESIUM
     Indication: PRODUCT USED FOR UNKNOWN INDICATION
     Dosage: UNK
     Route: 065

REACTIONS (5)
  - Nausea [Unknown]
  - Vomiting [Unknown]
  - Abdominal discomfort [Unknown]
  - Gastrooesophageal reflux disease [Unknown]
  - Diarrhoea [Unknown]

NARRATIVE: CASE EVENT DATE: 20180913
